FAERS Safety Report 6583978-X (Version None)
Quarter: 2010Q1

REPORT INFORMATION
  Report Type: 
  Country: None (occurrence: None)
  Receive Date: 20100213
  Receipt Date: 20100213
  Transmission Date: 20100710
  Serious: Yes (Hospitalization, Other)
  Sender: FDA-Public Use
  Company Number: None

PATIENT
  Age: 60 Year
  Sex: Male
  Weight: 80 kg

DRUGS (11)
  1. OLANZAPINE [Suspect]
     Indication: POST PROCEDURAL COMPLICATION
     Dosage: 5MG DAILY PO
     Route: 048
     Dates: start: 20080926, end: 20080929
  2. OLANZAPINE [Suspect]
     Indication: PSYCHOTIC DISORDER
     Dosage: 5MG DAILY PO
     Route: 048
     Dates: start: 20080926, end: 20080929
  3. ASPIRIN [Concomitant]
  4. NEXIUM [Concomitant]
  5. DOCUTSATE SODIUM [Concomitant]
  6. AMLODIPINE [Concomitant]
  7. LISINOPRIL [Concomitant]
  8. CARVEDILOL [Concomitant]
  9. ALBUTEROL [Concomitant]
  10. IPRATROPIUM NEBS [Concomitant]
  11. FUROSEMIDE [Concomitant]

REACTIONS (2)
  - DYSARTHRIA [None]
  - EXTRAPYRAMIDAL DISORDER [None]
